FAERS Safety Report 4673130-7 (Version None)
Quarter: 2005Q2

REPORT INFORMATION
  Report Type: 
  Country: None (occurrence: None)
  Receive Date: 20050525
  Receipt Date: 20050512
  Transmission Date: 20051028
  Serious: Yes (Hospitalization, Other)
  Sender: FDA-Public Use
  Company Number: DE-JNJFOC-20050503916

PATIENT
  Age: 26 Year
  Sex: Female

DRUGS (6)
  1. HALDOL [Suspect]
     Indication: DEPRESSION
     Route: 049
     Dates: start: 20041004, end: 20041201
  2. MIRTAZAPINE [Suspect]
     Indication: DEPRESSION
     Route: 049
     Dates: start: 20041004, end: 20041201
  3. FEROSANOL [Concomitant]
     Route: 049
     Dates: start: 20041004
  4. KALINOR [Concomitant]
     Route: 049
  5. MAGNESIA [Concomitant]
     Route: 049
  6. LORAZEPAM [Concomitant]
     Route: 049

REACTIONS (2)
  - CONDITION AGGRAVATED [None]
  - PLATELET COUNT DECREASED [None]
